FAERS Safety Report 25478443 (Version 1)
Quarter: 2025Q2

REPORT INFORMATION
  Report Type: Spontaneous
  Country: US (occurrence: None)
  Receive Date: 20250625
  Receipt Date: 20250625
  Transmission Date: 20250717
  Serious: Yes (Other)
  Sender: FDA-CTU
  Company Number: None

PATIENT
  Age: 80 Year
  Sex: Female
  Weight: 81.65 kg

DRUGS (6)
  1. XDEMVY [Suspect]
     Active Substance: LOTILANER
     Indication: Ocular demodicosis
     Dosage: FREQUENCY : TWICE A DAY;?
     Route: 047
     Dates: start: 20250527, end: 20250606
  2. SIMVASTATIN [Concomitant]
     Active Substance: SIMVASTATIN
  3. ERYTHROMYCIN [Concomitant]
     Active Substance: ERYTHROMYCIN
  4. CLOBETASOL PROPIONATE [Concomitant]
     Active Substance: CLOBETASOL PROPIONATE
  5. COENZYME Q10 [Concomitant]
     Active Substance: DIETARY SUPPLEMENT\UBIDECARENONE
  6. VITAMIN D3 [Concomitant]
     Active Substance: CHOLECALCIFEROL

REACTIONS (8)
  - Eye irritation [None]
  - Eye irritation [None]
  - Eye pruritus [None]
  - Eye pain [None]
  - Ocular hyperaemia [None]
  - Lacrimation increased [None]
  - Eye inflammation [None]
  - Vision blurred [None]
